FAERS Safety Report 4425535-7 (Version None)
Quarter: 2004Q3

REPORT INFORMATION
  Report Type: 
  Country: None (occurrence: None)
  Receive Date: 20040810
  Receipt Date: 20040726
  Transmission Date: 20050211
  Serious: Yes (Other)
  Sender: FDA-Public Use
  Company Number: 208075

PATIENT
  Age: 54 Year
  Sex: Female

DRUGS (4)
  1. RAPTIVA [Suspect]
     Indication: PSORIASIS
     Dosage: 0.8 ML, 1/WEEK, SUBCUTANEOUS
     Route: 058
     Dates: start: 20040201
  2. GLUCOPHAGE [Concomitant]
  3. ACCUPRIL [Concomitant]
  4. SKELAXIN [Concomitant]

REACTIONS (1)
  - LARYNGEAL CANCER [None]
